FAERS Safety Report 7948742-5 (Version None)
Quarter: 2011Q4

REPORT INFORMATION
  Report Type: 
  Country: None (occurrence: None)
  Receive Date: 20111125
  Receipt Date: 20110629
  Transmission Date: 20120403
  Serious: No
  Sender: FDA-Public Use
  Company Number: ADR-2011-11587

PATIENT

DRUGS (1)
  1. BACLOFEN [Suspect]

REACTIONS (5)
  - PYREXIA [None]
  - MUSCLE SPASTICITY [None]
  - URINARY RETENTION [None]
  - DRUG TOLERANCE [None]
  - CONSTIPATION [None]
